FAERS Safety Report 21721626 (Version 4)
Quarter: 2025Q4

REPORT INFORMATION
  Report Type: Spontaneous
  Country: EU (occurrence: EU)
  Receive Date: 20221213
  Receipt Date: 20251226
  Transmission Date: 20260118
  Serious: Yes (Life-Threatening, Hospitalization, Other)
  Sender: CURRAX PHARMACEUTICALS
  Company Number: EU-NALPROPION PHARMACEUTICALS INC.-NO-2022CUR024026

PATIENT
  Age: 59 Year
  Sex: Female

DRUGS (34)
  1. BUPROPION HYDROCHLORIDE\NALTREXONE HYDROCHLORIDE [Interacting]
     Active Substance: BUPROPION HYDROCHLORIDE\NALTREXONE HYDROCHLORIDE
     Indication: Weight control
     Dosage: 2 DF (2 IN THE MORNING AND 2 IN THE EVENING) 2+2
     Route: 048
     Dates: start: 202207, end: 20220928
  2. CIPRALEX [Suspect]
     Active Substance: ESCITALOPRAM OXALATE
     Indication: Depression
     Dosage: 10 MG DAILY
     Route: 048
  3. CIPRALEX [Suspect]
     Active Substance: ESCITALOPRAM OXALATE
     Indication: Anxiety
  4. VALPROATE SODIUM [Interacting]
     Active Substance: VALPROATE SODIUM
     Indication: Epilepsy
     Dosage: 1000 MILLIGRAM
     Route: 042
  5. VALPROATE SODIUM [Interacting]
     Active Substance: VALPROATE SODIUM
     Dosage: 2000 MILLIGRAM
     Route: 042
     Dates: start: 20220928, end: 20220929
  6. VALPROATE SODIUM [Interacting]
     Active Substance: VALPROATE SODIUM
     Dosage: INFUSION OF 200 MG/H
     Route: 065
  7. METOCLOPRAMIDE HYDROCHLORIDE [Interacting]
     Active Substance: METOCLOPRAMIDE HYDROCHLORIDE
     Indication: Vomiting
     Dosage: 10 MG INTRAVENOUSLY AT FOUR-HOUR INTERVALS
     Route: 042
     Dates: start: 20220928, end: 202209
  8. FENTANYL [Interacting]
     Active Substance: FENTANYL
     Indication: Product used for unknown indication
     Dosage: 0.1 ?G/KG/H
     Route: 065
     Dates: start: 20220930, end: 20221002
  9. FENTANYL [Interacting]
     Active Substance: FENTANYL
     Indication: Sedation
  10. PANTOPRAZOLE SODIUM [Interacting]
     Active Substance: PANTOPRAZOLE SODIUM
     Indication: Peptic ulcer
     Dosage: 40 MILLIGRAM GASTRO-RESISTANT TABLET
     Route: 048
  11. VIMPAT [Concomitant]
     Active Substance: LACOSAMIDE
     Indication: Seizure
     Dosage: UNK
     Dates: start: 2022, end: 202210
  12. ZOPICLONE [Concomitant]
     Active Substance: ZOPICLONE
     Indication: Insomnia
     Dosage: 5 MG QD
     Route: 048
  13. ZOPICLONE [Concomitant]
     Active Substance: ZOPICLONE
     Dosage: 7.5 MILLIGRAM
     Route: 065
  14. MIDAZOLAM [Concomitant]
     Active Substance: MIDAZOLAM
     Indication: Tonic convulsion
     Dosage: 5 MILLIGRAM
     Route: 030
     Dates: start: 20220928
  15. MIDAZOLAM [Concomitant]
     Active Substance: MIDAZOLAM
     Indication: Seizure
     Dosage: 3 MILLIGRAM
     Route: 042
  16. MIDAZOLAM [Concomitant]
     Active Substance: MIDAZOLAM
     Indication: Epilepsy
     Dosage: 1-3 MG, 45 MINUTES
     Route: 042
  17. MIDAZOLAM [Concomitant]
     Active Substance: MIDAZOLAM
     Indication: Sedative therapy
     Dosage: A TOTAL OF 13MG WAS ADMINISTERED OVER 6 HOURS
  18. MIDAZOLAM [Concomitant]
     Active Substance: MIDAZOLAM
     Dosage: INFUSION 10 MG/H
  19. SYMBICORT [Concomitant]
     Active Substance: BUDESONIDE\FORMOTEROL FUMARATE DIHYDRATE
     Indication: Asthma
     Dosage: 160/4.5?G ? 2 FIXED
     Route: 055
  20. PROPOFOL [Concomitant]
     Active Substance: PROPOFOL
     Indication: Sedative therapy
     Dosage: 4 MG/KG
     Route: 065
     Dates: start: 2022, end: 2022
  21. KEPPRA [Concomitant]
     Active Substance: LEVETIRACETAM
     Indication: Partial seizures
     Dosage: 1000 MILLIGRAM, QD, MAINTENANCE DOSE OF 1,000 MG ? 3
     Route: 042
     Dates: start: 2022
  22. KEPPRA [Concomitant]
     Active Substance: LEVETIRACETAM
     Dosage: 4500 MILLIGRAM
     Route: 042
  23. ACETAMINOPHEN [Concomitant]
     Active Substance: ACETAMINOPHEN
     Indication: Pain
     Dosage: 1 GRAM, 6 HOUR
     Route: 048
  24. ULTIVA [Concomitant]
     Active Substance: REMIFENTANIL HYDROCHLORIDE
     Indication: Partial seizures
     Dosage: 0.10 ?G/KG/H
     Route: 042
     Dates: start: 2022, end: 2022
  25. METFORMIN [Concomitant]
     Active Substance: METFORMIN HYDROCHLORIDE
     Indication: Type 2 diabetes mellitus
     Dosage: 500 MG, 8 HOUR
     Route: 048
  26. CANDESARTAN [Concomitant]
     Active Substance: CANDESARTAN
     Indication: Product used for unknown indication
     Dosage: 8 MILLIGRAM, QD
  27. ATORVASTATIN [Concomitant]
     Active Substance: ATORVASTATIN
     Indication: Product used for unknown indication
     Dosage: 40 MILLIGRAM, QD
  28. OXAZEPAM [Concomitant]
     Active Substance: OXAZEPAM
     Indication: Product used for unknown indication
     Dosage: 10 MILLIGRAM
  29. CISATRACURIUM [Concomitant]
     Active Substance: CISATRACURIUM
     Indication: Product used for unknown indication
     Dosage: 10 MILLIGRAM
     Route: 042
  30. CYPROHEPTADINE [Concomitant]
     Active Substance: CYPROHEPTADINE
     Indication: Product used for unknown indication
     Dosage: 2MG EVERY TWO HOURS, FOR A TOTAL OF 28 MG
  31. CYPROHEPTADINE [Concomitant]
     Active Substance: CYPROHEPTADINE
     Dosage: 12 MG WAS ADMINISTERED VIA A GASTRIC TUBE
  32. DIAZEPAM [Concomitant]
     Active Substance: DIAZEPAM
     Indication: Product used for unknown indication
     Dosage: 5 + 5 MG
     Route: 042
  33. PIPERACILLIN SODIUM\TAZOBACTAM SODIUM [Concomitant]
     Active Substance: PIPERACILLIN SODIUM\TAZOBACTAM SODIUM
     Indication: Pneumonia aspiration
     Dosage: 4 G ? 3
     Route: 042
  34. PIPERACILLIN SODIUM\TAZOBACTAM SODIUM [Concomitant]
     Active Substance: PIPERACILLIN SODIUM\TAZOBACTAM SODIUM
     Indication: Vaginal infection

REACTIONS (21)
  - Cardiovascular disorder [Recovered/Resolved]
  - Status epilepticus [Recovered/Resolved]
  - Nystagmus [Recovered/Resolved]
  - Drug interaction [Recovered/Resolved]
  - Laryngeal oedema [Recovered/Resolved]
  - Stridor [Recovered/Resolved]
  - Hypoxia [Recovered/Resolved]
  - Vaginal infection [Recovered/Resolved]
  - Muscle rigidity [Recovered/Resolved]
  - Serotonin syndrome [Recovered/Resolved]
  - Flatulence [Recovered/Resolved]
  - Pyrexia [Recovered/Resolved]
  - Pneumonia [Recovered/Resolved]
  - Body temperature increased [Recovered/Resolved]
  - Seizure [Recovered/Resolved]
  - Tremor [Recovered/Resolved]
  - Blood pressure increased [Recovered/Resolved]
  - Vomiting [Recovered/Resolved]
  - Hyperhidrosis [Recovered/Resolved]
  - Malaise [Recovered/Resolved]
  - Hyperhidrosis [Recovering/Resolving]

NARRATIVE: CASE EVENT DATE: 20220901
